FAERS Safety Report 7271619-8 (Version None)
Quarter: 2011Q1

REPORT INFORMATION
  Report Type: 
  Country: None (occurrence: None)
  Receive Date: 20110203
  Receipt Date: 20110120
  Transmission Date: 20110831
  Serious: Yes (Hospitalization)
  Sender: FDA-Public Use
  Company Number: US-ELI_LILLY_AND_COMPANY-US201101005372

PATIENT
  Sex: Female

DRUGS (8)
  1. FORTEO [Suspect]
     Dosage: 20 UG, OTHER
  2. COREG [Concomitant]
  3. KLONOPIN [Concomitant]
  4. PRILOSEC [Concomitant]
  5. CALCIUM [Concomitant]
     Dosage: 1000 D/F, DAILY (1/D)
  6. ENBREL [Concomitant]
  7. VITAMIN D [Concomitant]
     Dosage: 5000 D/F, DAILY (1/D)
  8. FORTEO [Suspect]
     Indication: OSTEOPOROSIS
     Dosage: 20 UG, ONE TO EVERY FOUR DAYS

REACTIONS (8)
  - PAIN [None]
  - INCORRECT DOSE ADMINISTERED [None]
  - MOVEMENT DISORDER [None]
  - ARTHRALGIA [None]
  - LIMB OPERATION [None]
  - BONE PAIN [None]
  - ARTHRITIS [None]
  - BACK PAIN [None]
